FAERS Safety Report 19011652 (Version 1)
Quarter: 2021Q1

REPORT INFORMATION
  Report Type: Spontaneous
  Country: SE (occurrence: SE)
  Receive Date: 20210316
  Receipt Date: 20210316
  Transmission Date: 20210420
  Serious: Yes (Other)
  Sender: FDA-Public Use
  Company Number: SE-UCBSA-2021011834

PATIENT
  Age: 20 Year
  Sex: Female

DRUGS (1)
  1. KEPPRA [Suspect]
     Active Substance: LEVETIRACETAM
     Indication: EPILEPSY
     Dosage: 1000 MILLIGRAM, 2X/DAY (BID)
     Dates: start: 2020

REACTIONS (6)
  - Depression [Unknown]
  - Gastrointestinal disorder [Unknown]
  - Weight decreased [Unknown]
  - Irritability [Recovering/Resolving]
  - Acne [Unknown]
  - Stress [Unknown]

NARRATIVE: CASE EVENT DATE: 2020
